FAERS Safety Report 18591710 (Version 1)
Quarter: 2020Q4

REPORT INFORMATION
  Report Type: Spontaneous
  Country: US (occurrence: US)
  Receive Date: 20201208
  Receipt Date: 20201208
  Transmission Date: 20210114
  Serious: Yes (Other)
  Sender: FDA-Public Use
  Company Number: US-PURDUE-USA-2020-0181893

PATIENT
  Sex: Male

DRUGS (6)
  1. MORPHINE SULFATE (SIMILAR TO NDA 19-516) [Suspect]
     Active Substance: MORPHINE SULFATE
     Indication: PAIN
     Dosage: 100 MG, UNK
     Route: 048
  2. FENTANYL. [Suspect]
     Active Substance: FENTANYL
     Indication: PAIN
     Dosage: 100 MCG, UNK
     Route: 062
  3. OXYCONTIN [Suspect]
     Active Substance: OXYCODONE HYDROCHLORIDE
     Indication: PAIN
     Dosage: UNK
     Route: 048
  4. OXYCODONE HCL CR TABLETS (SIMILAR TO NDA 22-272) [Suspect]
     Active Substance: OXYCODONE HYDROCHLORIDE
     Indication: PAIN
     Dosage: 30 MG, TWICE
     Route: 048
  5. MORPHINE SULFATE EXTENDED-RELEASE TABLETS (RHODES 74-769, 74-862) [Suspect]
     Active Substance: MORPHINE SULFATE
     Indication: PAIN
     Dosage: 100 MG, UNK
     Route: 048
  6. ROXICODONE [Suspect]
     Active Substance: OXYCODONE HYDROCHLORIDE
     Indication: PAIN
     Dosage: 15 MG, UNK
     Route: 065

REACTIONS (20)
  - Pneumonia necrotising [Unknown]
  - Drug abuse [Unknown]
  - Hypoxic-ischaemic encephalopathy [Unknown]
  - Tremor [Unknown]
  - Pleural effusion [Unknown]
  - Constipation [Unknown]
  - Lethargy [Unknown]
  - Leukocytosis [Unknown]
  - Anaemia [Unknown]
  - Withdrawal syndrome [Unknown]
  - Pruritus [Unknown]
  - Pneumonia aspiration [Unknown]
  - Pulmonary mass [Unknown]
  - Hypercapnia [Unknown]
  - Hypoxia [Unknown]
  - Sleep apnoea syndrome [Unknown]
  - Weight decreased [Unknown]
  - PCO2 increased [Unknown]
  - Acute respiratory failure [Unknown]
  - Productive cough [Unknown]
